FAERS Safety Report 9380986 (Version 1)
Quarter: 2013Q3

REPORT INFORMATION
  Report Type: Spontaneous
  Country: US (occurrence: US)
  Receive Date: 20130703
  Receipt Date: 20130703
  Transmission Date: 20140515
  Serious: Yes (Other)
  Sender: FDA-Public Use
  Company Number: US-BAYER-2013-060028

PATIENT
  Age: 44 Year
  Sex: Female

DRUGS (1)
  1. GADAVIST [Suspect]
     Dosage: 10 ML, ONCE
     Dates: start: 201305, end: 201305

REACTIONS (7)
  - Chest pain [Not Recovered/Not Resolved]
  - Chest discomfort [Not Recovered/Not Resolved]
  - Dyspnoea [Not Recovered/Not Resolved]
  - Cough [Not Recovered/Not Resolved]
  - Feeling hot [Not Recovered/Not Resolved]
  - Bronchospasm [Not Recovered/Not Resolved]
  - Prolonged expiration [Not Recovered/Not Resolved]
